FAERS Safety Report 17509311 (Version 1)
Quarter: 2020Q1

REPORT INFORMATION
  Report Type: Spontaneous
  Country: US (occurrence: US)
  Receive Date: 20200306
  Receipt Date: 20200306
  Transmission Date: 20200409
  Serious: No
  Sender: FDA-Public Use
  Company Number: None

PATIENT
  Age: 47 Year
  Sex: Male
  Weight: 63 kg

DRUGS (2)
  1. LEVOTHYROXIN 100 MCG TABLET [Suspect]
     Active Substance: LEVOTHYROXINE SODIUM
     Indication: HYPOTHYROIDISM
     Dosage: ?          QUANTITY:90 TABLET(S);?
     Route: 048
     Dates: start: 20191129, end: 20200301
  2. LORATADINE. [Concomitant]
     Active Substance: LORATADINE

REACTIONS (3)
  - Product solubility abnormal [None]
  - Product taste abnormal [None]
  - Fatigue [None]

NARRATIVE: CASE EVENT DATE: 20191129
